FAERS Safety Report 18171873 (Version 2)
Quarter: 2020Q3

REPORT INFORMATION
  Report Type: Spontaneous
  Country: US (occurrence: US)
  Receive Date: 20200819
  Receipt Date: 20200925
  Transmission Date: 20201103
  Serious: Yes (Hospitalization, Other)
  Sender: FDA-Public Use
  Company Number: US-ASTRAZENECA-2020SF03259

PATIENT
  Age: 789 Month
  Sex: Female
  Weight: 77.1 kg

DRUGS (5)
  1. VENTOLIN [Concomitant]
     Active Substance: ALBUTEROL SULFATE
     Indication: CHRONIC OBSTRUCTIVE PULMONARY DISEASE
     Dosage: 90.0UG AS REQUIRED
     Route: 055
  2. SYMBICORT [Suspect]
     Active Substance: BUDESONIDE\FORMOTEROL FUMARATE DIHYDRATE
     Indication: CHRONIC OBSTRUCTIVE PULMONARY DISEASE
     Dosage: 160 OF 4.5 MCG 2 PUFFS TWICE A DAY
     Route: 055
  3. PREDNISONE. [Concomitant]
     Active Substance: PREDNISONE
  4. ALBUTEROL. [Concomitant]
     Active Substance: ALBUTEROL
     Indication: CHRONIC OBSTRUCTIVE PULMONARY DISEASE
     Dosage: 2.5MG AS REQUIRED
     Route: 055
  5. SPIRIVA [Concomitant]
     Active Substance: TIOTROPIUM BROMIDE MONOHYDRATE
     Indication: CHRONIC OBSTRUCTIVE PULMONARY DISEASE
     Route: 055

REACTIONS (11)
  - Lower respiratory tract infection viral [Recovered/Resolved]
  - Sepsis [Unknown]
  - Choking sensation [Unknown]
  - Malaise [Unknown]
  - Incorrect dose administered by device [Unknown]
  - Pneumonia [Recovered/Resolved]
  - Lung disorder [Unknown]
  - Throat irritation [Unknown]
  - Device issue [Unknown]
  - Blood pressure abnormal [Unknown]
  - Intentional device misuse [Unknown]

NARRATIVE: CASE EVENT DATE: 201908
